FAERS Safety Report 26022652 (Version 1)
Quarter: 2025Q4

REPORT INFORMATION
  Report Type: Spontaneous
  Country: IN (occurrence: IN)
  Receive Date: 20251110
  Receipt Date: 20251110
  Transmission Date: 20260117
  Serious: Yes (Hospitalization, Other)
  Sender: PFIZER
  Company Number: IN-PFIZER INC-202500218112

PATIENT
  Age: 41 Year
  Sex: Male

DRUGS (3)
  1. CARBOPLATIN [Suspect]
     Active Substance: CARBOPLATIN
     Indication: Adenocarcinoma metastatic
     Dosage: UNK (1ST CYCLE DAY1)
     Dates: start: 20250507, end: 20250508
  2. PEMETREXED [Suspect]
     Active Substance: PEMETREXED
     Indication: Adenocarcinoma metastatic
     Dosage: UNK (1ST CYCLE DAY1)
     Dates: start: 20250507
  3. ZOLEDRONIC ACID [Concomitant]
     Active Substance: ZOLEDRONIC ACID
     Indication: Adenocarcinoma metastatic
     Dosage: UNK (1ST CYCLE DAY1)
     Dates: start: 20250507

REACTIONS (4)
  - Seizure [Unknown]
  - Headache [Unknown]
  - Vomiting [Unknown]
  - Drug intolerance [Unknown]

NARRATIVE: CASE EVENT DATE: 20250508
